FAERS Safety Report 9869551 (Version 1)
Quarter: 2014Q1

REPORT INFORMATION
  Report Type: Spontaneous
  Country: US (occurrence: None)
  Receive Date: 20140203
  Receipt Date: 20140203
  Transmission Date: 20141002
  Serious: Yes (Other)
  Sender: FDA-Public Use
  Company Number: SYM-2014-15550

PATIENT
  Age: 71 Year
  Sex: 0

DRUGS (1)
  1. XENAZINE [Suspect]
     Indication: HUNTINGTON^S DISEASE
     Route: 048
     Dates: start: 201306, end: 20131118

REACTIONS (4)
  - Dysphagia [None]
  - Local swelling [None]
  - Decubitus ulcer [None]
  - Blood sodium increased [None]
